FAERS Safety Report 18539093 (Version 1)
Quarter: 2020Q4

REPORT INFORMATION
  Report Type: Spontaneous
  Country: SE (occurrence: SE)
  Receive Date: 20201124
  Receipt Date: 20201124
  Transmission Date: 20210114
  Serious: Yes (Hospitalization)
  Sender: FDA-Public Use
  Company Number: SE-TEVA-2020-SE-1851493

PATIENT
  Age: 21 Year
  Sex: Female

DRUGS (3)
  1. STESOLID [Suspect]
     Active Substance: DIAZEPAM
     Route: 065
  2. IMOVANE [Suspect]
     Active Substance: ZOPICLONE
     Route: 065
  3. OXASCAND [Suspect]
     Active Substance: OXAZEPAM
     Route: 065

REACTIONS (5)
  - Depressed level of consciousness [Recovered/Resolved]
  - Urinary retention [Unknown]
  - Toxicity to various agents [Unknown]
  - Intentional overdose [Unknown]
  - Intentional self-injury [Unknown]

NARRATIVE: CASE EVENT DATE: 202010
